FAERS Safety Report 6063288-X (Version None)
Quarter: 2009Q1

REPORT INFORMATION
  Report Type: 
  Country: None (occurrence: None)
  Receive Date: 20090203
  Receipt Date: 20090128
  Transmission Date: 20090719
  Serious: Yes (Life-Threatening, Hospitalization)
  Sender: FDA-Public Use
  Company Number: FR-BAYER-200912101GPV

PATIENT
  Age: 63 Year
  Sex: Male

DRUGS (2)
  1. CIFLOX [Suspect]
     Indication: SEPSIS
     Route: 065
     Dates: start: 20080320, end: 20080329
  2. TIENAM [Concomitant]
     Indication: DRUG USE FOR UNKNOWN INDICATION
     Route: 065
     Dates: start: 20080320, end: 20080404

REACTIONS (2)
  - ELECTROCARDIOGRAM QT PROLONGED [None]
  - TORSADE DE POINTES [None]
